FAERS Safety Report 7131323-3 (Version None)
Quarter: 2010Q4

REPORT INFORMATION
  Report Type: 
  Country: None (occurrence: None)
  Receive Date: 20101124
  Receipt Date: 20101124
  Transmission Date: 20110411
  Serious: Yes (Hospitalization)
  Sender: FDA-Public Use
  Company Number: None

PATIENT
  Sex: Female
  Weight: 67.27 kg

DRUGS (2)
  1. TAXOL [Suspect]
     Dosage: 300 MG
     Dates: end: 20101110
  2. TOPOTECAN [Suspect]
     Dosage: 3.9 MG
     Dates: end: 20101112

REACTIONS (8)
  - ABDOMINAL PAIN [None]
  - ASTHENIA [None]
  - DECREASED APPETITE [None]
  - DIARRHOEA [None]
  - EPIDERMAL GROWTH FACTOR RECEPTOR DECREASED [None]
  - NEUTROPENIA [None]
  - PLATELET COUNT DECREASED [None]
  - RECTAL HAEMORRHAGE [None]
